FAERS Safety Report 14249196 (Version 4)
Quarter: 2018Q4

REPORT INFORMATION
  Report Type: Spontaneous
  Country: US (occurrence: US)
  Receive Date: 20171204
  Receipt Date: 20181130
  Transmission Date: 20190204
  Serious: No
  Sender: FDA-Public Use
  Company Number: US-LUNDBECK-DKLU2040075

PATIENT
  Age: 57 Year
  Sex: Male
  Weight: 93 kg

DRUGS (4)
  1. NORTHERA [Suspect]
     Active Substance: DROXIDOPA
     Dosage: SCHEDULE B WITH TITRATION COMPLETE
     Route: 048
     Dates: start: 20171031
  2. CYMBALTA [Concomitant]
     Active Substance: DULOXETINE HYDROCHLORIDE
     Indication: NEURALGIA
     Route: 048
     Dates: end: 201610
  3. NORTHERA [Suspect]
     Active Substance: DROXIDOPA
     Indication: ORTHOSTATIC HYPOTENSION
     Route: 065
     Dates: start: 201709
  4. NORTHERA [Suspect]
     Active Substance: DROXIDOPA
     Route: 048

REACTIONS (8)
  - Presyncope [Unknown]
  - Blood pressure fluctuation [Unknown]
  - Dizziness postural [Unknown]
  - Drug ineffective [Unknown]
  - Tension headache [Recovered/Resolved]
  - Migraine [Recovering/Resolving]
  - Fall [Unknown]
  - Cough [Not Recovered/Not Resolved]

NARRATIVE: CASE EVENT DATE: 2017
